FAERS Safety Report 25235862 (Version 1)
Quarter: 2025Q2

REPORT INFORMATION
  Report Type: Report from Study
  Country: TH (occurrence: TH)
  Receive Date: 20250424
  Receipt Date: 20250424
  Transmission Date: 20250716
  Serious: Yes (Death, Other)
  Sender: TAKEDA
  Company Number: TH-JNJFOC-20250428534

PATIENT
  Age: 80 Year
  Sex: Male

DRUGS (3)
  1. BORTEZOMIB [Suspect]
     Active Substance: BORTEZOMIB
     Indication: Plasma cell myeloma
     Dates: start: 20241015, end: 20250213
  2. DARZALEX [Suspect]
     Active Substance: DARATUMUMAB
     Indication: Plasma cell myeloma
     Dates: start: 20241015, end: 20250224
  3. DARZALEX [Suspect]
     Active Substance: DARATUMUMAB
     Dates: start: 20241015, end: 20250224

REACTIONS (1)
  - Death [Fatal]

NARRATIVE: CASE EVENT DATE: 20250401
